FAERS Safety Report 21661735 (Version 1)
Quarter: 2022Q4

REPORT INFORMATION
  Report Type: Spontaneous
  Country: US (occurrence: US)
  Receive Date: 20221130
  Receipt Date: 20221130
  Transmission Date: 20230113
  Serious: No
  Sender: FDA-Public Use
  Company Number: US-ELI_LILLY_AND_COMPANY-US202211012635

PATIENT
  Sex: Female

DRUGS (1)
  1. HUMALOG JUNIOR KWIKPEN [Suspect]
     Active Substance: INSULIN LISPRO
     Indication: Type 2 diabetes mellitus
     Dosage: 30 U, UNKNOWN (20-30 UNITS)
     Route: 058
     Dates: start: 2021

REACTIONS (10)
  - Chest discomfort [Unknown]
  - Nasal congestion [Unknown]
  - Productive cough [Unknown]
  - Adrenal cyst [Unknown]
  - Erythema [Recovering/Resolving]
  - Acne [Recovering/Resolving]
  - Wheezing [Unknown]
  - Rash [Recovering/Resolving]
  - Blood glucose increased [Unknown]
  - Drug ineffective [Unknown]
